FAERS Safety Report 12959387 (Version 1)
Quarter: 2016Q4

REPORT INFORMATION
  Report Type: Report from Study
  Country: CA (occurrence: CA)
  Receive Date: 20161121
  Receipt Date: 20161121
  Transmission Date: 20170207
  Serious: Yes (Death, Other)
  Sender: FDA-Public Use
  Company Number: PHHY2014CA023201

PATIENT
  Age: 58 Year
  Sex: Female

DRUGS (5)
  1. SANDOSTATIN [Suspect]
     Active Substance: OCTREOTIDE ACETATE
     Indication: PRODUCT USED FOR UNKNOWN INDICATION
     Dosage: 150 UG, PRN
     Route: 058
  2. SANDOSTATIN [Suspect]
     Active Substance: OCTREOTIDE ACETATE
     Dosage: 300 UG, PRN
     Route: 058
     Dates: start: 20140527
  3. GABAPENTIN. [Suspect]
     Active Substance: GABAPENTIN
     Indication: PAIN
     Dosage: 400 MG, TID
     Route: 065
  4. SANDOSTATIN LAR DEPOT [Suspect]
     Active Substance: OCTREOTIDE ACETATE
     Indication: METASTATIC CARCINOID TUMOUR
     Dosage: 30 MG, EVERY 3 WEEKS
     Route: 030
     Dates: start: 20040405
  5. GABAPENTIN. [Suspect]
     Active Substance: GABAPENTIN
     Indication: HYPERHIDROSIS
     Dosage: 100 MG, TID
     Route: 065

REACTIONS (20)
  - Diabetes mellitus [Unknown]
  - Malignant neoplasm progression [Unknown]
  - Hepatic pain [Unknown]
  - Nausea [Unknown]
  - Abdominal discomfort [Unknown]
  - Diarrhoea [Recovering/Resolving]
  - Asthenia [Unknown]
  - Blood glucose fluctuation [Unknown]
  - Abdominal pain [Unknown]
  - Blood pressure increased [Unknown]
  - Hot flush [Unknown]
  - Abdominal distension [Unknown]
  - Visual acuity reduced [Unknown]
  - Pain [Unknown]
  - Constipation [Recovering/Resolving]
  - Death [Fatal]
  - Body temperature decreased [Unknown]
  - Flushing [Recovering/Resolving]
  - Hyperhidrosis [Recovering/Resolving]
  - Fatigue [Unknown]

NARRATIVE: CASE EVENT DATE: 2014
